FAERS Safety Report 9137794 (Version 1)
Quarter: 2013Q1

REPORT INFORMATION
  Report Type: Spontaneous
  Country: US (occurrence: US)
  Receive Date: 20130304
  Receipt Date: 20130304
  Transmission Date: 20140127
  Serious: Yes (Other)
  Sender: FDA-Public Use
  Company Number: US-ELI_LILLY_AND_COMPANY-US201302009174

PATIENT
  Sex: Female

DRUGS (17)
  1. EVISTA [Suspect]
     Indication: PROPHYLAXIS
     Dosage: 60 MG, QD
     Dates: start: 1997
  2. LANSOPRAZOLE [Concomitant]
  3. ZOLOFT [Concomitant]
  4. XANAX [Concomitant]
  5. PRAVASTAN [Concomitant]
  6. NORVASC [Concomitant]
  7. CARVEDILOL [Concomitant]
  8. CLARINEX [Concomitant]
  9. DIOVAN [Concomitant]
  10. PRANDIN [Concomitant]
  11. LANTUS [Concomitant]
  12. SYNTHROID [Concomitant]
  13. VITAMIN D NOS [Concomitant]
  14. CALCIUM [Concomitant]
  15. IRON [Concomitant]
  16. GLUCOSAMINE [Concomitant]
  17. COQ10 [Concomitant]

REACTIONS (5)
  - Thyroid cancer [Unknown]
  - Gastrointestinal haemorrhage [Unknown]
  - Iron deficiency [Unknown]
  - Osteoporosis [Unknown]
  - Asthenia [Unknown]
